FAERS Safety Report 9556822 (Version 3)
Quarter: 2013Q4

REPORT INFORMATION
  Report Type: Spontaneous
  Country: FR (occurrence: FR)
  Receive Date: 20130926
  Receipt Date: 20131216
  Transmission Date: 20140711
  Serious: Yes (Other)
  Sender: FDA-Public Use
  Company Number: FR-CELGENEUS-056-50794-13092294

PATIENT
  Age: 72 Year
  Sex: Male

DRUGS (5)
  1. VIDAZA [Suspect]
     Indication: REFRACTORY ANAEMIA WITH AN EXCESS OF BLASTS
     Route: 058
     Dates: start: 20130701
  2. VIDAZA [Suspect]
     Route: 065
     Dates: start: 20130729
  3. VIDAZA [Suspect]
     Route: 065
     Dates: start: 20130912
  4. VIDAZA [Suspect]
     Route: 065
     Dates: start: 20131125
  5. NOXAFIL [Concomitant]
     Indication: PRODUCT USED FOR UNKNOWN INDICATION
     Route: 065
     Dates: start: 201307

REACTIONS (2)
  - Presyncope [Recovered/Resolved]
  - Anxiety [Recovered/Resolved]
